FAERS Safety Report 9452423 (Version 1)
Quarter: 2013Q3

REPORT INFORMATION
  Report Type: Spontaneous
  Country: GB (occurrence: GB)
  Receive Date: 20130812
  Receipt Date: 20130812
  Transmission Date: 20140515
  Serious: Yes (Other)
  Sender: FDA-Public Use
  Company Number: GB-JNJFOC-20130803704

PATIENT
  Sex: Male

DRUGS (2)
  1. PALEXIA SR [Suspect]
     Indication: PAIN
     Route: 048
     Dates: start: 2013, end: 201307
  2. PALEXIA SR [Suspect]
     Indication: PAIN
     Route: 048
     Dates: end: 2013

REACTIONS (2)
  - Overdose [Recovered/Resolved]
  - Incorrect dose administered [Recovered/Resolved]
